FAERS Safety Report 24638121 (Version 6)
Quarter: 2025Q3

REPORT INFORMATION
  Report Type: Spontaneous
  Country: US (occurrence: US)
  Receive Date: 20241119
  Receipt Date: 20250816
  Transmission Date: 20251020
  Serious: Yes (Hospitalization, Disabling, Other)
  Sender: ALEXION PHARMACEUTICALS
  Company Number: US-AstraZeneca-CH-00745388AP

PATIENT
  Sex: Female

DRUGS (1)
  1. SYMBICORT [Suspect]
     Active Substance: BUDESONIDE\FORMOTEROL FUMARATE DIHYDRATE
     Indication: Asthma
     Dosage: 160 MICROGRAM, BID

REACTIONS (11)
  - Pneumonia [Unknown]
  - Emotional disorder [Unknown]
  - Device use issue [Unknown]
  - Device malfunction [Unknown]
  - Herpes zoster [Unknown]
  - Immune system disorder [Unknown]
  - Dysphagia [Unknown]
  - Pulmonary mass [Unknown]
  - General physical condition abnormal [Unknown]
  - Intentional product use issue [Unknown]
  - Product label confusion [Unknown]
